FAERS Safety Report 10370433 (Version 1)
Quarter: 2014Q3

REPORT INFORMATION
  Report Type: Spontaneous
  Country: FR (occurrence: FR)
  Receive Date: 20140808
  Receipt Date: 20140808
  Transmission Date: 20150326
  Serious: Yes (Other)
  Sender: FDA-Public Use
  Company Number: FR-TEVA-498751ISR

PATIENT
  Age: 59 Year
  Sex: Male

DRUGS (4)
  1. DOLIPRANE [Concomitant]
     Active Substance: ACETAMINOPHEN
     Dosage: PONCTUAL TAKING
  2. KARDEGIC 160MG [Concomitant]
     Dosage: 1 DOSAGE FORMS DAILY;
     Dates: start: 1998
  3. LISINOPRIL. [Suspect]
     Active Substance: LISINOPRIL
     Indication: PRODUCT USED FOR UNKNOWN INDICATION
     Route: 048
     Dates: start: 1998, end: 20100420
  4. SOTALEX 80MG [Concomitant]

REACTIONS (17)
  - Escherichia infection [Unknown]
  - Gastroenteritis [Unknown]
  - Blood chloride decreased [None]
  - Chills [Unknown]
  - Blood creatinine increased [None]
  - Hyponatraemia [Not Recovered/Not Resolved]
  - Vomiting [Unknown]
  - Proteinuria [None]
  - Leukocyturia [None]
  - Pollakiuria [Unknown]
  - Pyrexia [Unknown]
  - Inflammation [Unknown]
  - Aspartate aminotransferase increased [None]
  - Alanine aminotransferase increased [None]
  - Inappropriate antidiuretic hormone secretion [Unknown]
  - Haematuria [None]
  - Blood osmolarity decreased [None]

NARRATIVE: CASE EVENT DATE: 20100410
